FAERS Safety Report 8917771 (Version 1)
Quarter: 2012Q4

REPORT INFORMATION
  Report Type: 
  Country: JP (occurrence: JP)
  Receive Date: 20121120
  Receipt Date: 20121120
  Transmission Date: 20130627
  Serious: Yes (Other)
  Sender: FDA-Public Use
  Company Number: JP-MERCK-1211JPN007054

PATIENT
  Age: 76 Year
  Sex: Female

DRUGS (6)
  1. BONALON [Suspect]
     Indication: OSTEOPOROSIS
     Dosage: 35 mg, qw
     Route: 048
  2. LOCHOL (FLUVASTATIN SODIUM) [Concomitant]
     Indication: HYPERLIPIDAEMIA
     Dosage: 30 mg, qd
     Route: 048
  3. CONIEL [Concomitant]
     Indication: HYPERLIPIDAEMIA
     Dosage: 8 mg, qd
     Route: 048
  4. ADALAT CR [Concomitant]
     Indication: HYPERTENSION
     Dosage: 40 mg, qd
     Route: 048
  5. DETANTOL R [Concomitant]
     Indication: HYPERTENSION
     Dosage: 6 mg, qd
     Route: 048
  6. MAINTATE [Concomitant]
     Indication: HYPERTENSION
     Dosage: 5 mg, qd
     Route: 048

REACTIONS (1)
  - Osteomyelitis [Recovered/Resolved]
